FAERS Safety Report 20345068 (Version 1)
Quarter: 2022Q1

REPORT INFORMATION
  Report Type: Report from Study
  Country: US (occurrence: US)
  Receive Date: 20220118
  Receipt Date: 20220118
  Transmission Date: 20220424
  Serious: Yes (Hospitalization)
  Sender: FDA-Public Use
  Company Number: US-MYLANLABS-2021M1095690

PATIENT

DRUGS (1)
  1. TOBI [Suspect]
     Active Substance: TOBRAMYCIN
     Indication: Product used for unknown indication
     Dosage: 5 MILLILITER, BID,INHALE 5ML TWICE DAILY FOR 28 DAYS ON/ 23 DAYS OFF

REACTIONS (2)
  - Hospitalisation [Unknown]
  - Off label use [Unknown]
